FAERS Safety Report 17721784 (Version 2)
Quarter: 2020Q2

REPORT INFORMATION
  Report Type: Spontaneous
  Country: JP (occurrence: JP)
  Receive Date: 20200429
  Receipt Date: 20200625
  Transmission Date: 20200714
  Serious: Yes (Other)
  Sender: FDA-Public Use
  Company Number: JP-GLAXOSMITHKLINE-JP2020GSK072702

PATIENT
  Age: 80 Year
  Sex: Female

DRUGS (2)
  1. OMEGA-3-ACID ETHYL ESTERS. [Suspect]
     Active Substance: OMEGA-3-ACID ETHYL ESTERS
     Indication: PRODUCT USED FOR UNKNOWN INDICATION
     Dosage: 2 G
     Route: 065
     Dates: start: 201608
  2. OMEGA-3-ACID ETHYL ESTERS. [Suspect]
     Active Substance: OMEGA-3-ACID ETHYL ESTERS
     Dosage: 2 G
     Route: 065
     Dates: start: 20200214

REACTIONS (4)
  - Chromaturia [Unknown]
  - Asthenia [Unknown]
  - Rhabdomyolysis [Unknown]
  - Blood creatine phosphokinase increased [Unknown]
